FAERS Safety Report 6428837-8 (Version None)
Quarter: 2009Q4

REPORT INFORMATION
  Report Type: 
  Country: None (occurrence: None)
  Receive Date: 20091103
  Receipt Date: 20091020
  Transmission Date: 20100525
  Serious: Yes (Death)
  Sender: FDA-Public Use
  Company Number: A-NJ2009-26555

PATIENT
  Age: 74 Year
  Sex: Female

DRUGS (2)
  1. VENTAVIS [Suspect]
     Indication: PULMONARY ARTERIAL HYPERTENSION
     Dosage: 2.5 UG, RESPIRATORY; 2.5 UG,  6X/DAY,RESPIRATORY
     Route: 055
     Dates: start: 20090708, end: 20090701
  2. VENTAVIS [Suspect]
     Indication: PULMONARY ARTERIAL HYPERTENSION
     Dosage: 2.5 UG, RESPIRATORY; 2.5 UG,  6X/DAY,RESPIRATORY
     Route: 055
     Dates: start: 20090701

REACTIONS (3)
  - HEADACHE [None]
  - TREMOR [None]
  - VOMITING [None]
